FAERS Safety Report 25150609 (Version 1)
Quarter: 2025Q2

REPORT INFORMATION
  Report Type: Spontaneous
  Country: US (occurrence: US)
  Receive Date: 20250402
  Receipt Date: 20250402
  Transmission Date: 20250716
  Serious: Yes (Other)
  Sender: ALKERMES
  Company Number: US-ALKERMES INC.-ALK-2025-000766

PATIENT
  Age: 47 Year
  Sex: Female

DRUGS (1)
  1. VIVITROL [Suspect]
     Active Substance: NALTREXONE
     Indication: Dependence
     Route: 030
     Dates: start: 2024

REACTIONS (2)
  - Hepatic mass [Not Recovered/Not Resolved]
  - Malabsorption from injection site [Not Recovered/Not Resolved]

NARRATIVE: CASE EVENT DATE: 20250301
